FAERS Safety Report 6410925-3 (Version None)
Quarter: 2009Q4

REPORT INFORMATION
  Report Type: 
  Country: None (occurrence: None)
  Receive Date: 20091022
  Receipt Date: 20091013
  Transmission Date: 20100525
  Serious: Yes (Other)
  Sender: FDA-Public Use
  Company Number: NL-ABBOTT-09P-114-0602993-00

PATIENT
  Sex: Female

DRUGS (3)
  1. HUMIRA [Suspect]
     Indication: CROHN'S DISEASE
     Route: 058
     Dates: start: 20081212
  2. LOPERAMIDE [Concomitant]
     Indication: DIARRHOEA
     Route: 048
     Dates: start: 20090301
  3. SIMVASTINE [Concomitant]
     Indication: PROPHYLAXIS
     Route: 048
     Dates: start: 20090801

REACTIONS (3)
  - CARDIAC FAILURE [None]
  - CHEST PAIN [None]
  - RENAL FAILURE [None]
